FAERS Safety Report 23554039 (Version 2)
Quarter: 2024Q2

REPORT INFORMATION
  Report Type: Spontaneous
  Country: CA (occurrence: CA)
  Receive Date: 20240222
  Receipt Date: 20240502
  Transmission Date: 20240716
  Serious: Yes (Other)
  Sender: FDA-Public Use
  Company Number: CA-Harrow Eye-2153557

PATIENT
  Age: 62 Year
  Sex: Male

DRUGS (4)
  1. MAXIDEX [Suspect]
     Active Substance: DEXAMETHASONE
     Indication: Retinal vein occlusion
  2. NEPAFENAC [Suspect]
     Active Substance: NEPAFENAC
  3. BRIMONIDINE [Concomitant]
     Active Substance: BRIMONIDINE TARTRATE
  4. BEVACIZUMAB [Concomitant]
     Active Substance: BEVACIZUMAB

REACTIONS (3)
  - Glaucomatous optic neuropathy [Unknown]
  - Product administered at inappropriate site [Unknown]
  - Implantation complication [Unknown]
